FAERS Safety Report 11769425 (Version 2)
Quarter: 2015Q4

REPORT INFORMATION
  Report Type: Spontaneous
  Country: US (occurrence: US)
  Receive Date: 20151123
  Receipt Date: 20151210
  Transmission Date: 20160304
  Serious: Yes (Hospitalization)
  Sender: FDA-Public Use
  Company Number: US-LPDUSPRD-20150913

PATIENT

DRUGS (1)
  1. CIPROFLOXACIN OPHTHALMIC SOLUTION, USP (0755-01) [Suspect]
     Active Substance: CIPROFLOXACIN
     Dosage: DOSE NOT PROVIDED
     Route: 065

REACTIONS (1)
  - Drug-induced liver injury [Unknown]
